FAERS Safety Report 11983380 (Version 2)
Quarter: 2016Q2

REPORT INFORMATION
  Report Type: Spontaneous
  Country: US (occurrence: US)
  Receive Date: 20160201
  Receipt Date: 20160415
  Transmission Date: 20160815
  Serious: Yes (Death, Hospitalization)
  Sender: FDA-Public Use
  Company Number: US-ENDO PHARMACEUTICALS INC.-2016-000598

PATIENT
  Age: 59 Year
  Sex: Male
  Weight: 113.5 kg

DRUGS (9)
  1. ANDROGEL [Suspect]
     Active Substance: TESTOSTERONE
     Indication: ANDROGEN REPLACEMENT THERAPY
     Route: 065
     Dates: start: 201005, end: 201008
  2. MISOPROSTOL. [Concomitant]
     Active Substance: MISOPROSTOL
     Indication: OSTEOARTHRITIS
     Route: 065
     Dates: start: 2003, end: 2012
  3. METFORMIN [Concomitant]
     Active Substance: METFORMIN HYDROCHLORIDE
     Indication: TYPE 2 DIABETES MELLITUS
     Route: 065
     Dates: start: 2004, end: 2012
  4. CLONIDINE. [Concomitant]
     Active Substance: CLONIDINE
     Indication: TOURETTE^S DISORDER
     Route: 065
  5. ANDRODERM [Suspect]
     Active Substance: TESTOSTERONE
     Indication: ANDROGEN REPLACEMENT THERAPY
     Route: 065
     Dates: start: 201008, end: 201210
  6. NEURONTIN [Concomitant]
     Active Substance: GABAPENTIN
     Indication: BACK PAIN
     Route: 065
     Dates: start: 2003, end: 2012
  7. TESTIM [Suspect]
     Active Substance: TESTOSTERONE
     Indication: ANDROGEN REPLACEMENT THERAPY
     Route: 062
     Dates: start: 2003, end: 2010
  8. DICLOFENAC [Concomitant]
     Active Substance: DICLOFENAC
     Indication: OSTEOARTHRITIS
     Route: 065
     Dates: start: 2003, end: 2012
  9. TESTOSTERONE. [Suspect]
     Active Substance: TESTOSTERONE
     Indication: ANDROGEN REPLACEMENT THERAPY
     Route: 030
     Dates: start: 2003

REACTIONS (14)
  - Coronary artery disease [Not Recovered/Not Resolved]
  - Pneumonia [Fatal]
  - Deep vein thrombosis [Unknown]
  - Septic shock [Fatal]
  - Nephrolithiasis [Unknown]
  - Phlebitis superficial [Unknown]
  - Cellulitis [Unknown]
  - Nausea [Unknown]
  - Respiratory failure [Not Recovered/Not Resolved]
  - Vomiting [Unknown]
  - Acute myocardial infarction [Unknown]
  - Atrial fibrillation [Unknown]
  - Pneumonia [Unknown]
  - Cellulitis [Unknown]

NARRATIVE: CASE EVENT DATE: 20040712
